FAERS Safety Report 8578032-1 (Version None)
Quarter: 2012Q3

REPORT INFORMATION
  Report Type: 
  Country: None (occurrence: None)
  Receive Date: 20120726
  Receipt Date: 20120712
  Transmission Date: 20120928
  Serious: Yes (Disabling, Other)
  Sender: FDA-Public Use
  Company Number: IN-1193210

PATIENT
  Age: 13 Year
  Sex: Male

DRUGS (5)
  1. PREDNISOLONE ACETATE OPHTHALMIC SUSPENSION/DROPS [Suspect]
     Indication: ULCERATIVE KERATITIS
     Dosage: 1% Q1H OU, OPHTHALMIC (TAPERED ACCORDING TO TREATMENT RESPONSE OPHTHALMIC)
     Route: 047
  2. ACTO PRED (METHYL PREDNISOLONE) (NOT SPECIFIED) [Suspect]
     Indication: ULCERATIVE KERATITIS
     Dosage: 500 MG, QD, INTRAVENOUS
     Route: 042
  3. ATROPINE SULFATE [Concomitant]
  4. CHLORAMPHENICOL 0.5 % EYE DROPS (CHORAMPHENICOL 0.5%) [Suspect]
     Indication: ULCERATIVE KERATITIS
     Dosage: 0.5% QID OU OPHTHALMIC
     Route: 047
  5. PREDNISOLONE [Suspect]
     Indication: ULCERATIVE KERATITIS
     Dosage: 1 MG/KG, QD, ORAL (TAPERED SLOWLY DEPENDING ON RESPONSE, ORAL)
     Route: 048

REACTIONS (3)
  - KERATITIS BACTERIAL [None]
  - CORNEAL SCAR [None]
  - VISUAL ACUITY REDUCED [None]
